FAERS Safety Report 25856284 (Version 1)
Quarter: 2025Q3

REPORT INFORMATION
  Report Type: Spontaneous
  Country: CH (occurrence: CH)
  Receive Date: 20250928
  Receipt Date: 20250928
  Transmission Date: 20251020
  Serious: Yes (Hospitalization)
  Sender: JOHNSON AND JOHNSON
  Company Number: None

PATIENT
  Age: 15 Year
  Sex: Female

DRUGS (12)
  1. RISPERDAL [Interacting]
     Active Substance: RISPERIDONE
     Indication: Product used for unknown indication
     Route: 065
     Dates: end: 20250630
  2. RISPERDAL [Interacting]
     Active Substance: RISPERIDONE
     Route: 065
     Dates: end: 20250630
  3. RISPERDAL [Interacting]
     Active Substance: RISPERIDONE
  4. RISPERDAL [Interacting]
     Active Substance: RISPERIDONE
  5. RISPERDAL [Interacting]
     Active Substance: RISPERIDONE
  6. RISPERDAL [Interacting]
     Active Substance: RISPERIDONE
  7. METFORMIN HYDROCHLORIDE [Suspect]
     Active Substance: METFORMIN HYDROCHLORIDE
     Route: 065
     Dates: end: 20250630
  8. ESCITALOPRAM [Interacting]
     Active Substance: ESCITALOPRAM OXALATE
     Dates: end: 20250630
  9. BUTYLSCOPOLAMINE BROMIDE [Interacting]
     Active Substance: BUTYLSCOPOLAMINE BROMIDE
     Dates: end: 20250630
  10. DROPERIDOL [Interacting]
     Active Substance: DROPERIDOL
     Dates: end: 20250630
  11. CONCERTA [Concomitant]
     Active Substance: METHYLPHENIDATE HYDROCHLORIDE
     Indication: Product used for unknown indication
     Dosage: UNIQUEMENT EN P?RIODE SCOLAIRE
  12. DIPHENHYDRAMINE HYDROCHLORIDE [Concomitant]
     Active Substance: DIPHENHYDRAMINE HYDROCHLORIDE
     Indication: Product used for unknown indication

REACTIONS (5)
  - Altered state of consciousness [Recovered/Resolved]
  - Lactic acidosis [Recovered/Resolved]
  - Vomiting [Recovered/Resolved]
  - Drug interaction [Recovered/Resolved]
  - Intentional overdose [Recovered/Resolved]

NARRATIVE: CASE EVENT DATE: 20250630
